FAERS Safety Report 9691714 (Version 1)
Quarter: 2013Q4

REPORT INFORMATION
  Report Type: Spontaneous
  Country: DE (occurrence: DE)
  Receive Date: 20131115
  Receipt Date: 20131115
  Transmission Date: 20140711
  Serious: Yes (Other)
  Sender: FDA-Public Use
  Company Number: DE-B.I. PHARMACEUTICALS,INC./RIDGEFIELD-2013-BI-37101DE

PATIENT
  Age: 64 Year
  Sex: Male
  Weight: 75 kg

DRUGS (5)
  1. SPIRIVA [Suspect]
     Dosage: 2 ANZ
     Route: 055
     Dates: start: 20130817, end: 20130818
  2. TAMSOLUSIN [Concomitant]
  3. OMEPRAZOL [Concomitant]
  4. EXFORGE 5/80MG [Concomitant]
     Dosage: STREBGTH: 5/80MG
  5. ALLOPURINOL [Concomitant]

REACTIONS (4)
  - Acne [Recovered/Resolved]
  - Acne [Recovered/Resolved]
  - Pruritus [Recovered/Resolved]
  - Pneumonia [Unknown]
